FAERS Safety Report 5250556-4 (Version None)
Quarter: 2007Q1

REPORT INFORMATION
  Report Type: 
  Country: None (occurrence: None)
  Receive Date: 20070228
  Receipt Date: 20070220
  Transmission Date: 20070707
  Serious: Yes (Hospitalization)
  Sender: FDA-Public Use
  Company Number: GB-BAXTER-2007BH002277

PATIENT
  Age: 68 Year
  Sex: Male
  Weight: 92 kg

DRUGS (10)
  1. EXTRANEAL [Suspect]
     Indication: PERITONEAL DIALYSIS
     Route: 033
     Dates: start: 20031001, end: 20070115
  2. FLUCYTOSINE [Concomitant]
  3. FLUCYTOSINE [Concomitant]
  4. CALCITRIOL [Concomitant]
  5. SIMVASTATIN [Concomitant]
  6. SEVELAMER [Concomitant]
  7. SENNA [Concomitant]
  8. PREGADAY [Concomitant]
  9. FLUCONAZOLE [Concomitant]
     Dates: start: 20070111
  10. PHYSIONEAL, UNSPECIFIED PRODUCT [Concomitant]
     Dates: start: 20031001

REACTIONS (2)
  - FUNGAL PERITONITIS [None]
  - VOMITING [None]
